FAERS Safety Report 5413449-5 (Version None)
Quarter: 2007Q3

REPORT INFORMATION
  Report Type: 
  Country: None (occurrence: None)
  Receive Date: 20070809
  Receipt Date: 20070809
  Transmission Date: 20080115
  Serious: Yes (Other)
  Sender: FDA-Public Use
  Company Number: None

PATIENT
  Age: 16 Year
  Sex: Male
  Weight: 92.9874 kg

DRUGS (1)
  1. CLAVARIS 40 MG BARR [Suspect]
     Indication: ACNE
     Dosage: 40MG 2/DAY PO
     Route: 048
     Dates: start: 20061016, end: 20070416

REACTIONS (1)
  - CONVULSION [None]
